FAERS Safety Report 17300376 (Version 1)
Quarter: 2020Q1

REPORT INFORMATION
  Report Type: Spontaneous
  Country: US (occurrence: US)
  Receive Date: 20200122
  Receipt Date: 20200122
  Transmission Date: 20200409
  Serious: Yes (Other)
  Sender: FDA-Public Use
  Company Number: US-JNJFOC-20200118389

PATIENT
  Age: 77 Year
  Sex: Male
  Weight: 72.64 kg

DRUGS (2)
  1. ERLEADA [Suspect]
     Active Substance: APALUTAMIDE
     Indication: PROSTATE CANCER
     Route: 048
     Dates: start: 20190913
  2. LUPRON [Concomitant]
     Active Substance: LEUPROLIDE ACETATE

REACTIONS (3)
  - Prostate cancer metastatic [Unknown]
  - Product label issue [Unknown]
  - Fatigue [Unknown]

NARRATIVE: CASE EVENT DATE: 20191209
